FAERS Safety Report 24918055 (Version 1)
Quarter: 2025Q1

REPORT INFORMATION
  Report Type: Spontaneous
  Country: ES (occurrence: ES)
  Receive Date: 20250203
  Receipt Date: 20250203
  Transmission Date: 20250408
  Serious: Yes (Death)
  Sender: PFIZER
  Company Number: ES-PFM-2025-00488

PATIENT
  Age: 79 Year
  Sex: Female

DRUGS (11)
  1. ENCORAFENIB [Suspect]
     Active Substance: ENCORAFENIB
     Indication: BRAF gene mutation
     Dosage: 450 MG, QD (1/DAY)
     Dates: start: 20250117, end: 20250122
  2. ENCORAFENIB [Suspect]
     Active Substance: ENCORAFENIB
     Indication: Non-small cell lung cancer metastatic
  3. BINIMETINIB [Suspect]
     Active Substance: BINIMETINIB
     Indication: BRAF gene mutation
     Dosage: 45 MG, BID (2/DAY)
     Dates: start: 20250117, end: 20250122
  4. BINIMETINIB [Suspect]
     Active Substance: BINIMETINIB
     Indication: Non-small cell lung cancer metastatic
  5. DEXAMETHASONE [Concomitant]
     Active Substance: DEXAMETHASONE
     Dosage: 4 MG, QD (1/DAY)
     Dates: end: 20250122
  6. NEXIUM [Concomitant]
     Active Substance: ESOMEPRAZOLE MAGNESIUM
     Dosage: 20 MG, QD (1/DAY)
     Dates: end: 20250122
  7. MIRTAZAPINE [Concomitant]
     Active Substance: MIRTAZAPINE
     Dosage: 15 MG, QD (1/DAY)
     Dates: end: 20250122
  8. LORAZEPAM [Concomitant]
     Active Substance: LORAZEPAM
     Dosage: 1 MG, QD (1/DAY)
     Dates: end: 20250122
  9. IVABRADINE [Concomitant]
     Active Substance: IVABRADINE
     Dosage: 5 MG, BID (2/DAY)
     Dates: end: 20250122
  10. TOSEINA [CODEINE PHOSPHATE HEMIHYDRATE] [Concomitant]
     Dosage: 2 ML, TID (3/DAY)
     Dates: end: 20250122
  11. DIETARY SUPPLEMENT [Concomitant]
     Active Substance: DIETARY SUPPLEMENT
     Dosage: 1 DF, BID (2/DAY) (FAT: 35% TCV CARBOHYDRATE: 49% TCV PROTEIN: 16% TCV, TCV=TOTAL CALORIFIC VAL
     Dates: end: 20250122

REACTIONS (1)
  - General physical health deterioration [Fatal]
